FAERS Safety Report 24782145 (Version 1)
Quarter: 2024Q4

REPORT INFORMATION
  Report Type: Spontaneous
  Country: US (occurrence: US)
  Receive Date: 20241227
  Receipt Date: 20241227
  Transmission Date: 20250114
  Serious: Yes (Other)
  Sender: ABBVIE
  Company Number: US-ABBVIE-6065372

PATIENT

DRUGS (1)
  1. QULIPTA [Suspect]
     Active Substance: ATOGEPANT
     Indication: Headache
     Route: 048

REACTIONS (3)
  - Surgery [Unknown]
  - Drug ineffective [Unknown]
  - Headache [Unknown]

NARRATIVE: CASE EVENT DATE: 20241121
